FAERS Safety Report 6676372-4 (Version None)
Quarter: 2010Q2

REPORT INFORMATION
  Report Type: 
  Country: None (occurrence: None)
  Receive Date: 20100408
  Receipt Date: 20100325
  Transmission Date: 20101027
  Serious: Yes (Hospitalization)
  Sender: FDA-Public Use
  Company Number: 2010001055

PATIENT
  Age: 64 Year
  Sex: Male

DRUGS (7)
  1. ERLOTINIB (ERLOTINIB) (TABLET) (ERLOTINIB) [Suspect]
     Indication: PANCREATIC CARCINOMA
     Dosage: (100 MG), ORAL
     Route: 048
     Dates: start: 20090831, end: 20100212
  2. CAPECITABINE [Suspect]
     Indication: PANCREATIC CARCINOMA
     Dosage: (800 MG/M2, BID), ORAL
     Route: 048
     Dates: start: 20090801, end: 20091008
  3. GEMCITABINE [Suspect]
     Indication: PANCREATIC CARCINOMA
     Dosage: (1000 MG/M2, Q1W), INTRAVENOUS
     Route: 042
     Dates: start: 20091124, end: 20100202
  4. LIPITOR [Concomitant]
  5. PANCREATIN TRIPLE STRENGTH CAP [Concomitant]
  6. LEXAPRO [Concomitant]
  7. PRILOSEC [Concomitant]

REACTIONS (6)
  - ANAEMIA [None]
  - COLITIS [None]
  - DRUG TOXICITY [None]
  - GASTROENTERITIS RADIATION [None]
  - PANCYTOPENIA [None]
  - RECTAL HAEMORRHAGE [None]
